FAERS Safety Report 7422138-7 (Version None)
Quarter: 2011Q2

REPORT INFORMATION
  Report Type: 
  Country: None (occurrence: None)
  Receive Date: 20110418
  Receipt Date: 20110413
  Transmission Date: 20111010
  Serious: Yes (Hospitalization)
  Sender: FDA-Public Use
  Company Number: US-B.I. PHARMACEUTICALS,INC./RIDGEFIELD-2011-BP-08058BP

PATIENT
  Sex: Female

DRUGS (11)
  1. SINGULAIR [Concomitant]
     Indication: EMPHYSEMA
  2. FLAX OIL [Concomitant]
     Dosage: 2000 MG
  3. VITEYES VITAMIN [Concomitant]
  4. FISH OIL [Concomitant]
     Dosage: 1000 MG
  5. FUROSEMIDE [Concomitant]
     Indication: OEDEMA
     Dosage: 60 MG
  6. PRADAXA [Suspect]
     Indication: ATRIAL FIBRILLATION
     Dosage: 300 MG
     Route: 048
  7. CARDIEZEM [Concomitant]
     Indication: CARDIAC DISORDER
  8. FOSAMAX [Concomitant]
     Indication: BONE DISORDER
  9. POTASSIUM [Concomitant]
     Indication: OEDEMA
     Dosage: 20 MEQ
  10. DILTIAZEM HCL [Concomitant]
     Dosage: 360 MG
  11. ADVAIR DISKUS 100/50 [Concomitant]
     Indication: EMPHYSEMA

REACTIONS (3)
  - OEDEMA PERIPHERAL [None]
  - BRADYARRHYTHMIA [None]
  - OEDEMA [None]
